FAERS Safety Report 10673166 (Version 3)
Quarter: 2015Q1

REPORT INFORMATION
  Report Type: Spontaneous
  Country: IT (occurrence: IT)
  Receive Date: 20141224
  Receipt Date: 20150313
  Transmission Date: 20150720
  Serious: Yes (Death)
  Sender: FDA-Public Use
  Company Number: IT-ROCHE-1512350

PATIENT
  Age: 52 Year
  Sex: Male

DRUGS (9)
  1. REBETOL [Suspect]
     Active Substance: RIBAVIRIN
     Indication: HEPATITIS C
     Route: 048
     Dates: start: 20141023, end: 20141201
  2. TRUVADA [Concomitant]
     Active Substance: EMTRICITABINE\TENOFOVIR DISOPROXIL FUMARATE
     Indication: HIV INFECTION
     Route: 048
     Dates: start: 201408
  3. FOLINA [Concomitant]
     Active Substance: FOLIC ACID
     Indication: HIV INFECTION
     Route: 065
     Dates: start: 201409
  4. INCIVO [Suspect]
     Active Substance: TELAPREVIR
     Indication: HEPATIC CIRRHOSIS
     Route: 048
     Dates: start: 20141023, end: 20141201
  5. DIBASE [Concomitant]
     Active Substance: CHOLECALCIFEROL
     Indication: HIV INFECTION
     Route: 065
     Dates: start: 2012
  6. BENERVA [Concomitant]
     Active Substance: THIAMINE
     Route: 065
     Dates: start: 2012
  7. ISENTRESS [Concomitant]
     Active Substance: RALTEGRAVIR POTASSIUM
     Indication: HIV INFECTION
     Route: 048
     Dates: start: 201409
  8. PEGASYS [Suspect]
     Active Substance: PEGINTERFERON ALFA-2A
     Indication: HEPATITIS C
     Route: 058
     Dates: start: 20141023, end: 20141201
  9. OMEPRAZOLE. [Concomitant]
     Active Substance: OMEPRAZOLE
     Route: 048
     Dates: start: 201403

REACTIONS (3)
  - Cardiac arrest [Fatal]
  - Sudden death [Fatal]
  - Thrombocytopenia [Unknown]

NARRATIVE: CASE EVENT DATE: 20141201
